FAERS Safety Report 21350040 (Version 2)
Quarter: 2024Q2

REPORT INFORMATION
  Report Type: Report from Study
  Country: PT (occurrence: PT)
  Receive Date: 20220919
  Receipt Date: 20240412
  Transmission Date: 20240716
  Serious: Yes (Other)
  Sender: FDA-Public Use
  Company Number: PT-AMERICAN REGENT INC-2022002634

PATIENT
  Age: 52 Year
  Sex: Male
  Weight: 120 kg

DRUGS (21)
  1. FERINJECT [Suspect]
     Active Substance: FERRIC CARBOXYMALTOSE
     Indication: Product used for unknown indication
     Dosage: 1000 MILLIGRAM
     Route: 042
     Dates: start: 20220308, end: 20220308
  2. FERINJECT [Suspect]
     Active Substance: FERRIC CARBOXYMALTOSE
     Dosage: 500 MILLIGRAM
     Route: 042
     Dates: start: 202203
  3. VELTASSA [Suspect]
     Active Substance: PATIROMER
     Indication: Hyperkalaemia
     Dosage: 8.4 GM, 1 IN 24 HR, 1 SACHET WITH AFTERNOON SNACK (1 ARBITRARY UNIT)
     Route: 048
     Dates: start: 20210503, end: 20220305
  4. VELTASSA [Suspect]
     Active Substance: PATIROMER
     Dosage: 8.4 GM, 1 IN 24 HR (1 ARBITRARY UNIT)
     Route: 048
     Dates: start: 20220308
  5. RABEPRAZOLE [Concomitant]
     Active Substance: RABEPRAZOLE
     Indication: Product used for unknown indication
     Dosage: ON AN EMPTY STOMACH (40 MG, 1 IN 24 HR)
     Route: 048
  6. TAMSULOSIN [Concomitant]
     Active Substance: TAMSULOSIN
     Indication: Product used for unknown indication
     Dosage: AFTER BREAKFAST (0.4 MG, 1 IN 24 HR)
     Route: 048
  7. OZEMPIC [Concomitant]
     Active Substance: SEMAGLUTIDE
     Indication: Product used for unknown indication
     Dosage: 1 MG/0.74 ML ( 1 ARBITRARY UNIT, 1 IN 1 WK)
     Route: 058
  8. APIDRA [Concomitant]
     Active Substance: INSULIN GLULISINE
     Indication: Product used for unknown indication
     Dosage: 1 ^TABLET^ WITH BREAKFAST, ACCORDING TO CAPILLARY BLOOD GLUCOSE
  9. IVABRADINE [Concomitant]
     Active Substance: IVABRADINE
     Indication: Product used for unknown indication
     Dosage: 1 TABLET WITH BREAKFAST AND DINNER (5 MG, 1 IN 12 HR)
     Route: 048
  10. INSULIN DEGLUDEC [Concomitant]
     Active Substance: INSULIN DEGLUDEC
     Indication: Product used for unknown indication
     Dosage: 68 INTERNATIONAL UNIT IN THE MORNING (1 IN 24 HR)
     Route: 058
  11. FEBUXOSTAT [Concomitant]
     Active Substance: FEBUXOSTAT
     Indication: Product used for unknown indication
     Dosage: 80 MILLIGRAM (1 TABLET WITH BREAKFAST) 1 IN  24 HR
     Route: 065
  12. ATORVASTATIN\EZETIMIBE [Concomitant]
     Active Substance: ATORVASTATIN\EZETIMIBE
     Indication: Product used for unknown indication
     Dosage: WITH DINNER (1 ARBITRARY UNIT, 1 IN 24 HR)
     Route: 048
  13. QUETIAPINE [Concomitant]
     Active Substance: QUETIAPINE
     Indication: Product used for unknown indication
     Dosage: 25 MILLIGRAM, 1 IN 24 HR
     Route: 048
  14. SPIRONOLACTONE [Concomitant]
     Active Substance: SPIRONOLACTONE
     Indication: Product used for unknown indication
     Dosage: 50 MILLIGRAM WITH LUNCH 1 IN 24 HR
     Route: 048
  15. DIULO [Concomitant]
     Active Substance: METOLAZONE
     Indication: Product used for unknown indication
     Dosage: 5 MILLIGRAM (1 IN 24 HR), 1 TABLET ON EMPTY STOMACH
     Route: 048
  16. PRADAXA [Concomitant]
     Active Substance: DABIGATRAN ETEXILATE MESYLATE
     Indication: Product used for unknown indication
     Dosage: 150 MILLIGRAM (1 IN 12 HR), 1 TABLE WITH BREAKFAST, 1 WITH DINNER
     Route: 048
  17. FUROSEMIDE [Concomitant]
     Active Substance: FUROSEMIDE
     Indication: Product used for unknown indication
     Dosage: 2 TABLETS ON AN EMPTY STOMACH, 1 TAB WITH AFTERNOON SNACK
     Route: 048
  18. DOMPERIDONE [Concomitant]
     Active Substance: DOMPERIDONE
     Indication: Product used for unknown indication
     Dosage: 10 MILLIGRAM, 1 TABLET BEFORE MEALS 1 IN 8 HR
     Route: 048
  19. BISOPROLOL [Concomitant]
     Active Substance: BISOPROLOL\BISOPROLOL FUMARATE
     Indication: Product used for unknown indication
     Dosage: WITH BREAKFAST (10 MG, 1 IN 24 HR)
     Route: 048
  20. NEPARVIS [Concomitant]
     Indication: Product used for unknown indication
     Dosage: STRENGTH 97 MG PLUS 103 MG; 1 TABLET WITH BREAKFAST PLUS TABLET WITH DINNER (1 ARBITRARY UNIT, 1 IN
     Route: 048
  21. ACETAMINOPHEN [Concomitant]
     Active Substance: ACETAMINOPHEN
     Indication: Product used for unknown indication
     Dosage: 1000 MILLIGRAM, AS NEEDED 1 IN 8 HR
     Route: 048

REACTIONS (5)
  - Pulmonary embolism [Unknown]
  - Hypomagnesaemia [Recovered/Resolved]
  - Hypomagnesaemia [Recovered/Resolved]
  - COVID-19 [Unknown]
  - Diarrhoea [Recovered/Resolved]

NARRATIVE: CASE EVENT DATE: 20210506
